FAERS Safety Report 6600652-1 (Version None)
Quarter: 2010Q1

REPORT INFORMATION
  Report Type: 
  Country: None (occurrence: None)
  Receive Date: 20100223
  Receipt Date: 20100223
  Transmission Date: 20100710
  Serious: No
  Sender: FDA-Public Use
  Company Number: None

PATIENT
  Sex: Female
  Weight: 72.1219 kg

DRUGS (1)
  1. CHANTIX [Suspect]
     Indication: SMOKING CESSATION THERAPY
     Dosage: CHANTIX STARTER PACK AS DIRECTED ORAL
     Route: 048
     Dates: start: 20100128, end: 20100208

REACTIONS (6)
  - AGITATION [None]
  - CRYING [None]
  - DEPRESSION [None]
  - PAIN [None]
  - SUICIDAL IDEATION [None]
  - UNEVALUABLE EVENT [None]
